FAERS Safety Report 9386624 (Version 2)
Quarter: 2013Q3

REPORT INFORMATION
  Report Type: Spontaneous
  Country: CA (occurrence: CA)
  Receive Date: 20130708
  Receipt Date: 20130716
  Transmission Date: 20140515
  Serious: Yes (Hospitalization, Other)
  Sender: FDA-Public Use
  Company Number: CA-US-EMD SERONO, INC.-7221208

PATIENT
  Age: 51 Year
  Sex: Female

DRUGS (3)
  1. REBIF [Suspect]
     Indication: RELAPSING-REMITTING MULTIPLE SCLEROSIS
     Route: 058
     Dates: start: 20010326, end: 201209
  2. REBIF [Suspect]
     Route: 058
  3. VITAMIN D                          /00107901/ [Concomitant]
     Indication: PRODUCT USED FOR UNKNOWN INDICATION

REACTIONS (27)
  - Immune thrombocytopenic purpura [Recovered/Resolved]
  - Hyponatraemia [Unknown]
  - Blood creatinine increased [Unknown]
  - Urinary tract infection [Unknown]
  - Pneumonia [Unknown]
  - Epistaxis [Unknown]
  - Abdominal pain [Unknown]
  - Bone marrow failure [Unknown]
  - Thrombocytopenia [Recovering/Resolving]
  - Anaemia [Unknown]
  - Headache [Unknown]
  - Reticulocyte count decreased [Unknown]
  - Restless legs syndrome [Unknown]
  - Muscular weakness [Not Recovered/Not Resolved]
  - Balance disorder [Unknown]
  - Paraesthesia [Unknown]
  - Micturition urgency [Unknown]
  - Hypertension [Unknown]
  - Secondary progressive multiple sclerosis [Unknown]
  - Pain in extremity [Not Recovered/Not Resolved]
  - Musculoskeletal stiffness [Not Recovered/Not Resolved]
  - Muscle spasticity [Unknown]
  - Malaise [Unknown]
  - Hypoaesthesia [Unknown]
  - Dyskinesia [Unknown]
  - White blood cell count decreased [Unknown]
  - Fatigue [Not Recovered/Not Resolved]
